FAERS Safety Report 17113216 (Version 5)
Quarter: 2020Q4

REPORT INFORMATION
  Report Type: Report from Study
  Country: None (occurrence: US)
  Receive Date: 20191204
  Receipt Date: 20201119
  Transmission Date: 20210113
  Serious: Yes (Hospitalization, Other)
  Sender: FDA-Public Use
  Company Number: US-ABBVIE-19K-163-3173567-00

PATIENT
  Age: 71 Year
  Sex: Male
  Weight: 81.72 kg

DRUGS (3)
  1. HUMIRA [Suspect]
     Active Substance: ADALIMUMAB
     Indication: PSORIASIS
     Route: 058
     Dates: end: 20191106
  2. TRULICITY [Suspect]
     Active Substance: DULAGLUTIDE
     Indication: PRODUCT USED FOR UNKNOWN INDICATION
     Route: 065
     Dates: start: 202004
  3. SULFAMETH/TRIMETH [Concomitant]
     Active Substance: SULFAMETHOXAZOLE\TRIMETHOPRIM
     Indication: PRODUCT USED FOR UNKNOWN INDICATION

REACTIONS (14)
  - Post procedural infection [Recovered/Resolved]
  - Prostatic disorder [Unknown]
  - Procedural failure [Not Recovered/Not Resolved]
  - Procedural pain [Unknown]
  - Device issue [Unknown]
  - Bladder spasm [Unknown]
  - Stress [Unknown]
  - Infection [Unknown]
  - Diabetes mellitus [Unknown]
  - Impaired healing [Not Recovered/Not Resolved]
  - Calculus bladder [Recovering/Resolving]
  - Immunodeficiency [Unknown]
  - Dizziness [Unknown]
  - Psoriasis [Not Recovered/Not Resolved]

NARRATIVE: CASE EVENT DATE: 2019
